FAERS Safety Report 6055351-4 (Version None)
Quarter: 2009Q1

REPORT INFORMATION
  Report Type: 
  Country: None (occurrence: None)
  Receive Date: 20090123
  Receipt Date: 20090108
  Transmission Date: 20090719
  Serious: Yes (Death)
  Sender: FDA-Public Use
  Company Number: 2009S1000463

PATIENT
  Age: 36 Year
  Sex: Female

DRUGS (4)
  1. INSULIN HUMAN [Suspect]
     Dosage: INHALATION
     Route: 055
  2. LORAZEPAM [Suspect]
  3. RISPERIDONE TABLETS USP [Suspect]
  4. TOPIRAMATE [Suspect]

REACTIONS (3)
  - COMPLETED SUICIDE [None]
  - DRUG TOXICITY [None]
  - INTENTIONAL DRUG MISUSE [None]
